FAERS Safety Report 13677602 (Version 1)
Quarter: 2017Q2

REPORT INFORMATION
  Report Type: Spontaneous
  Country: IN (occurrence: IN)
  Receive Date: 20170622
  Receipt Date: 20170622
  Transmission Date: 20170830
  Serious: Yes (Disabling)
  Sender: FDA-Public Use
  Company Number: IN-ASTRAZENECA-2017SE64208

PATIENT
  Sex: Male

DRUGS (2)
  1. BRILINTA [Suspect]
     Active Substance: TICAGRELOR
     Dosage: 180.0MG ONCE/SINGLE ADMINISTRATION
     Route: 048
  2. BRILINTA [Suspect]
     Active Substance: TICAGRELOR
     Dosage: 90.0MG ONCE/SINGLE ADMINISTRATION
     Route: 048

REACTIONS (2)
  - Dyspnoea [Unknown]
  - Hyperhidrosis [Unknown]
